FAERS Safety Report 6802825-1 (Version None)
Quarter: 2010Q2

REPORT INFORMATION
  Report Type: 
  Country: None (occurrence: None)
  Receive Date: 20100628
  Receipt Date: 20100624
  Transmission Date: 20101027
  Serious: Yes (Death, Hospitalization)
  Sender: FDA-Public Use
  Company Number: PHHY2010BR41134

PATIENT
  Sex: Female

DRUGS (2)
  1. EXELON [Suspect]
     Indication: DEMENTIA ALZHEIMER'S TYPE
     Dosage: 9MG/5CM^2; 1 PATCH PER DAY
     Route: 062
     Dates: start: 20090101
  2. EXELON [Suspect]
     Dosage: 18 MG/10CM^2; 1 PATCH PER DAY
     Route: 062

REACTIONS (2)
  - ASPIRATION BRONCHIAL [None]
  - COMA [None]
